FAERS Safety Report 8223903-9 (Version None)
Quarter: 2012Q1

REPORT INFORMATION
  Report Type: 
  Country: None (occurrence: None)
  Receive Date: 20120320
  Receipt Date: 20120320
  Transmission Date: 20120608
  Serious: Yes (Hospitalization)
  Sender: FDA-Public Use
  Company Number: None

PATIENT
  Sex: Male
  Weight: 122 kg

DRUGS (6)
  1. BLEOMYCIN SULFATE [Suspect]
     Dosage: 25 UNIT
  2. DACARBAZINE [Suspect]
     Dosage: 930 MG
  3. HYDROCODONE BITARTRATE AND ACETAMINOPHEN [Concomitant]
  4. DOXORUBICIN HCL [Suspect]
     Dosage: 62 MG
  5. VINBLASTINE SULFATE [Suspect]
     Dosage: 15 MG
  6. IBUPROFEN [Concomitant]

REACTIONS (1)
  - NEUTROPENIA [None]
